FAERS Safety Report 8538818-6 (Version None)
Quarter: 2012Q3

REPORT INFORMATION
  Report Type: 
  Country: None (occurrence: None)
  Receive Date: 20120726
  Receipt Date: 20120712
  Transmission Date: 20120928
  Serious: Yes (Death, Other)
  Sender: FDA-Public Use
  Company Number: US-RANBAXY-2012US-58127

PATIENT
  Sex: Female

DRUGS (4)
  1. LISINOPRIL [Suspect]
     Indication: HYPERTENSION
     Dosage: 20 MG, DAILY
     Route: 048
     Dates: start: 20120101
  2. MULTI-VITAMINS [Concomitant]
     Indication: PRODUCT USED FOR UNKNOWN INDICATION
     Dosage: UNKNOWN
     Route: 065
  3. ATORVASTATIN [Suspect]
     Indication: BLOOD CHOLESTEROL INCREASED
     Dosage: 80 MG, DAILY
     Route: 065
     Dates: start: 20120101
  4. ASCORBIC ACID [Concomitant]
     Indication: PRODUCT USED FOR UNKNOWN INDICATION
     Dosage: 500 UNITS, DAILY
     Route: 065

REACTIONS (10)
  - HYPERVENTILATION [None]
  - ARRHYTHMIA [None]
  - WEIGHT INCREASED [None]
  - PALPITATIONS [None]
  - HEART RATE INCREASED [None]
  - FEELING ABNORMAL [None]
  - MEDICATION ERROR [None]
  - MALAISE [None]
  - BLOOD PRESSURE FLUCTUATION [None]
  - WRONG TECHNIQUE IN DRUG USAGE PROCESS [None]
